FAERS Safety Report 12427884 (Version 1)
Quarter: 2016Q2

REPORT INFORMATION
  Report Type: Spontaneous
  Country: US (occurrence: US)
  Receive Date: 20160602
  Receipt Date: 20160602
  Transmission Date: 20160815
  Serious: No
  Sender: FDA-Public Use
  Company Number: US-NOVEN PHARMACEUTICALS, INC.-US2015000248

PATIENT
  Age: 13 Year
  Sex: Female

DRUGS (1)
  1. DAYTRANA [Suspect]
     Active Substance: METHYLPHENIDATE
     Indication: ATTENTION DEFICIT/HYPERACTIVITY DISORDER
     Dosage: 30 MG, UNK
     Route: 062
     Dates: start: 201412

REACTIONS (5)
  - Application site pruritus [Unknown]
  - Product quality issue [Unknown]
  - Application site swelling [Unknown]
  - Application site erythema [Unknown]
  - Drug administered at inappropriate site [Unknown]

NARRATIVE: CASE EVENT DATE: 201412
